FAERS Safety Report 5300180-X (Version None)
Quarter: 2007Q2

REPORT INFORMATION
  Report Type: 
  Country: None (occurrence: None)
  Receive Date: 20070411
  Receipt Date: 20070328
  Transmission Date: 20071010
  Serious: Yes (Disabling, Congenital Anomaly, Other)
  Sender: FDA-Public Use
  Company Number: 012079

PATIENT
  Sex: Male

DRUGS (1)
  1. CLARAVIS [Suspect]
     Dosage: ORAL
     Route: 048
     Dates: start: 20050801

REACTIONS (7)
  - ANOTIA [None]
  - CARDIAC OPERATION [None]
  - CEREBELLAR HYPOPLASIA [None]
  - CONGENITAL ANOMALY [None]
  - DRUG EXPOSURE DURING PREGNANCY [None]
  - IMMUNODEFICIENCY CONGENITAL [None]
  - THYMUS HYPOPLASIA [None]
